FAERS Safety Report 23971237 (Version 1)
Quarter: 2024Q2

REPORT INFORMATION
  Report Type: Spontaneous
  Country: FR (occurrence: FR)
  Receive Date: 20240613
  Receipt Date: 20240613
  Transmission Date: 20240716
  Serious: Yes (Death)
  Sender: FDA-Public Use
  Company Number: FR-STRIDES ARCOLAB LIMITED-2024SP006787

PATIENT
  Age: 21 Year
  Sex: Male
  Weight: 61 kg

DRUGS (4)
  1. MORPHINE SULFATE [Suspect]
     Active Substance: MORPHINE SULFATE
     Indication: Analgesic therapy
     Dosage: UNK
     Route: 065
  2. MIDAZOLAM [Suspect]
     Active Substance: MIDAZOLAM
     Indication: Sedative therapy
     Dosage: 0.47-1.2?MG/KG/H
     Route: 065
  3. KETAMINE [Suspect]
     Active Substance: KETAMINE
     Indication: Sedative therapy
     Dosage: 1-2?MG/KG/H
     Route: 065
  4. PROPOFOL [Suspect]
     Active Substance: PROPOFOL
     Indication: Sedative therapy
     Dosage: 1-3?MG/KG/H?
     Route: 065

REACTIONS (2)
  - Death [Fatal]
  - Tachyphylaxis [Unknown]
